FAERS Safety Report 6369940-0 (Version None)
Quarter: 2009Q3

REPORT INFORMATION
  Report Type: 
  Country: None (occurrence: None)
  Receive Date: 20090917
  Receipt Date: 20090914
  Transmission Date: 20100115
  Serious: Yes (Hospitalization)
  Sender: FDA-Public Use
  Company Number: 1000007738

PATIENT
  Age: 54 Year
  Sex: Female

DRUGS (6)
  1. SAVELLA [Suspect]
     Indication: FIBROMYALGIA
     Dosage: 12.5 MG (12.5 MG, 1 IN 1 D), ORAL
     Route: 048
     Dates: start: 20090701, end: 20090701
  2. SAVELLA [Suspect]
     Dosage: TITRATED TO 50 MG QAM, 12.5MG QPM, ORAL
     Route: 048
     Dates: start: 20090701, end: 20090701
  3. WELLBUTRIN SR [Concomitant]
  4. DARVOCET [Concomitant]
  5. XANAX [Concomitant]
  6. ZOMIG [Concomitant]

REACTIONS (5)
  - ACUTE MYOCARDIAL INFARCTION [None]
  - BLOOD CHOLESTEROL INCREASED [None]
  - LIPIDS ABNORMAL [None]
  - NAUSEA [None]
  - VISION BLURRED [None]
